FAERS Safety Report 12997929 (Version 3)
Quarter: 2017Q3

REPORT INFORMATION
  Report Type: Spontaneous
  Country: GB (occurrence: GB)
  Receive Date: 20161205
  Receipt Date: 20170905
  Transmission Date: 20171127
  Serious: Yes (Other)
  Sender: FDA-Public Use
  Company Number: GB-MYLANLABS-2016M1036039

PATIENT
  Age: 44 Year
  Sex: Male

DRUGS (2)
  1. CLOZARIL [Suspect]
     Active Substance: CLOZAPINE
     Indication: SCHIZOPHRENIA
     Dosage: UNK
     Route: 048
     Dates: start: 20160819
  2. CLOZARIL [Suspect]
     Active Substance: CLOZAPINE
     Dosage: UNK
     Route: 048
     Dates: start: 20170621

REACTIONS (8)
  - Differential white blood cell count abnormal [Recovering/Resolving]
  - Neutrophil count increased [Unknown]
  - Haemoglobin decreased [Not Recovered/Not Resolved]
  - Monocyte count increased [Unknown]
  - Red blood cell count decreased [Not Recovered/Not Resolved]
  - Platelet count increased [Unknown]
  - Eosinophil count increased [Unknown]
  - Haematocrit decreased [Unknown]

NARRATIVE: CASE EVENT DATE: 20160822
